FAERS Safety Report 7006050-3 (Version None)
Quarter: 2010Q3

REPORT INFORMATION
  Report Type: 
  Country: None (occurrence: None)
  Receive Date: 20100921
  Receipt Date: 20100916
  Transmission Date: 20110219
  Serious: Yes (Hospitalization)
  Sender: FDA-Public Use
  Company Number: FR-WYE-G06681410

PATIENT
  Sex: Female
  Weight: 67 kg

DRUGS (6)
  1. GEMTUZUMAB OZOGAMICIN [Suspect]
     Indication: ACUTE MYELOID LEUKAEMIA
     Dosage: 5 MG TOTAL DAILY
     Route: 042
     Dates: start: 20100127, end: 20100130
  2. TENORMIN [Concomitant]
     Route: 048
  3. ELISOR [Concomitant]
     Route: 048
  4. ISOPRINOSINE [Concomitant]
     Dosage: 2 TABLETS TOTAL DAILY
     Route: 048
  5. DAUNORUBICIN HCL [Suspect]
     Indication: ACUTE MYELOID LEUKAEMIA
     Dosage: 100 MG TOTAL DAILY
     Dates: start: 20100127, end: 20100129
  6. ARACYTINE [Suspect]
     Indication: ACUTE MYELOID LEUKAEMIA
     Dosage: 336 MG TOTAL DAILY
     Dates: start: 20100127, end: 20100201

REACTIONS (1)
  - DEEP VEIN THROMBOSIS [None]
